FAERS Safety Report 26020253 (Version 1)
Quarter: 2025Q4

REPORT INFORMATION
  Report Type: Spontaneous
  Country: US (occurrence: None)
  Receive Date: 20251108
  Receipt Date: 20251108
  Transmission Date: 20260117
  Serious: No
  Sender: FDA-CTU
  Company Number: None

PATIENT
  Age: 49 Year
  Sex: Female
  Weight: 114.75 kg

DRUGS (20)
  1. ZEPBOUND [Suspect]
     Active Substance: TIRZEPATIDE
     Indication: Obesity
     Dosage: OTHER FREQUENCY : ONCE A WEEK;?OTHER ROUTE : INJECTION;?
     Route: 050
  2. ESTRADIOL TRANSDERMAL SYSTEM [Concomitant]
     Active Substance: ESTRADIOL
  3. SYNTHROID [Concomitant]
     Active Substance: LEVOTHYROXINE SODIUM
  4. ATOMOXETINE [Concomitant]
     Active Substance: ATOMOXETINE
  5. LIPITOR [Concomitant]
     Active Substance: ATORVASTATIN CALCIUM
  6. ESCITALOPRAM [Concomitant]
     Active Substance: ESCITALOPRAM OXALATE
  7. LAMICTAL [Concomitant]
     Active Substance: LAMOTRIGINE
  8. GABAPENTIN [Concomitant]
     Active Substance: GABAPENTIN
  9. VENLAFAXINE [Concomitant]
     Active Substance: VENLAFAXINE HYDROCHLORIDE
  10. TRAMADOL [Concomitant]
     Active Substance: TRAMADOL
  11. Vitamins B complex [Concomitant]
  12. C [Concomitant]
  13. VITAMIN D3 [Concomitant]
     Active Substance: CHOLECALCIFEROL
  14. TOCOPHEROL [Concomitant]
     Active Substance: TOCOPHEROL
  15. IRON [Concomitant]
     Active Substance: IRON
  16. ZINC [Concomitant]
     Active Substance: ZINC
  17. PROBIOTICS NOS [Concomitant]
     Active Substance: PROBIOTICS NOS
  18. MAGNESIUM [Concomitant]
     Active Substance: MAGNESIUM
  19. ALLEGRA [Concomitant]
     Active Substance: FEXOFENADINE HYDROCHLORIDE
  20. ALEVE [Concomitant]
     Active Substance: NAPROXEN SODIUM

REACTIONS (5)
  - Breast tenderness [None]
  - Nipple pain [None]
  - Breast pain [None]
  - Depressed mood [None]
  - Crying [None]

NARRATIVE: CASE EVENT DATE: 20251107
